FAERS Safety Report 9057700 (Version 1)
Quarter: 2013Q1

REPORT INFORMATION
  Report Type: Spontaneous
  Country: JP (occurrence: None)
  Receive Date: 20130117
  Receipt Date: 20130117
  Transmission Date: 20140127
  Serious: Yes (Hospitalization)
  Sender: FDA-Public Use
  Company Number: DSA_61882_2013

PATIENT
  Age: 54 Year
  Sex: Female

DRUGS (4)
  1. FLUOROURACIL (FLUOROURACIL) [Suspect]
     Indication: COLON CANCER
     Dosage: (DF)
  2. FLUOROURACIL (FLUOROURACIL) [Suspect]
     Indication: METASTASES TO LIVER
     Dosage: (DF)
  3. OXALIPLATIN [Concomitant]
  4. LEUCOVORIN /00566701/ [Concomitant]

REACTIONS (12)
  - Hyperammonaemia [None]
  - Hypoxia [None]
  - Oliguria [None]
  - Cardiac disorder [None]
  - Depressed level of consciousness [None]
  - Cognitive disorder [None]
  - Asterixis [None]
  - Gastrointestinal disorder [None]
  - Blood creatinine increased [None]
  - Ejection fraction decreased [None]
  - Haemodialysis [None]
  - General physical health deterioration [None]
